FAERS Safety Report 8906429 (Version 1)
Quarter: 2012Q4

REPORT INFORMATION
  Report Type: Spontaneous
  Country: US (occurrence: None)
  Receive Date: 20121109
  Receipt Date: 20121109
  Transmission Date: 20130627
  Serious: Yes (Life-Threatening, Hospitalization, Other)
  Sender: FDA-Public Use
  Company Number: None

PATIENT
  Age: 75 Year
  Sex: Female
  Weight: 71.22 kg

DRUGS (2)
  1. MARCAINE [Suspect]
     Indication: FOOT PAIN
     Dates: start: 20120309
  2. KENALOG [Suspect]

REACTIONS (2)
  - Anaphylactic shock [None]
  - Drug ineffective [None]
